FAERS Safety Report 9294779 (Version 1)
Quarter: 2013Q1

REPORT INFORMATION
  Report Type: Spontaneous
  Country: US (occurrence: None)
  Receive Date: 20121227
  Receipt Date: 20121227
  Transmission Date: 20140127
  Serious: Yes (Hospitalization)
  Sender: FDA-Public Use
  Company Number: PHEH2012US003726

PATIENT
  Age: 29 Year
  Sex: Female

DRUGS (2)
  1. MYFORTIC (MYCOPHENOLIC ACID) TABLET [Suspect]
     Route: 048
  2. NEORAL (CICLOSPORIN) [Suspect]

REACTIONS (5)
  - Urosepsis [None]
  - Joint range of motion decreased [None]
  - Arthralgia [None]
  - Blood pressure increased [None]
  - Back pain [None]
